FAERS Safety Report 7281813-8 (Version None)
Quarter: 2010Q4

REPORT INFORMATION
  Report Type: 
  Country: None (occurrence: None)
  Receive Date: 20101206
  Receipt Date: 20100907
  Transmission Date: 20110411
  Serious: Yes (Other)
  Sender: FDA-Public Use
  Company Number: 2010SP048269

PATIENT
  Sex: Female

DRUGS (2)
  1. SAPHRIS [Suspect]
     Indication: SCHIZOPHRENIA
     Dosage: 20 MG;BID;SL
     Route: 060
     Dates: start: 20100301
  2. ZYPREXA [Concomitant]

REACTIONS (3)
  - OVERDOSE [None]
  - TARDIVE DYSKINESIA [None]
  - TREMOR [None]
